FAERS Safety Report 6183353-6 (Version None)
Quarter: 2009Q2

REPORT INFORMATION
  Report Type: 
  Country: None (occurrence: None)
  Receive Date: 20090507
  Receipt Date: 20090505
  Transmission Date: 20091009
  Serious: Yes (Other)
  Sender: FDA-Public Use
  Company Number: US-TYCO HEALTHCARE/MALLINCKRODT-T200900901

PATIENT
  Sex: Male
  Weight: 6.4 kg

DRUGS (6)
  1. TECHNESCAN MAG3 [Suspect]
     Indication: RENAL SCAN
     Dosage: UNK
     Route: 042
     Dates: start: 20090415, end: 20090415
  2. TECHNETIUM TC 99M GENERATOR [Suspect]
     Indication: RENAL SCAN
     Dosage: 2.3 MCI, SINGLE
     Route: 042
     Dates: start: 20090415, end: 20090415
  3. LASIX [Suspect]
     Dosage: 6 MG, UNK
     Route: 042
     Dates: start: 20090415
  4. DIPRIVAN [Suspect]
     Dosage: UNK
     Dates: start: 20090415
  5. AMOXICILLIN [Concomitant]
     Indication: ANTIBIOTIC PROPHYLAXIS
  6. ZANTAC                             /00550802/ [Concomitant]

REACTIONS (3)
  - DYSPNOEA [None]
  - STRIDOR [None]
  - TACHYCARDIA [None]
